FAERS Safety Report 13116826 (Version 1)
Quarter: 2017Q1

REPORT INFORMATION
  Report Type: Spontaneous
  Country: US (occurrence: US)
  Receive Date: 20170116
  Receipt Date: 20170116
  Transmission Date: 20170428
  Serious: No
  Sender: FDA-Public Use
  Company Number: US-PFIZER INC-2017014437

PATIENT
  Age: 58 Year
  Sex: Male

DRUGS (1)
  1. SUTENT [Suspect]
     Active Substance: SUNITINIB MALATE
     Indication: NEUROENDOCRINE TUMOUR
     Dosage: 50 MG, CYCLIC (28 DAYS ON/14 DAYS OFF)

REACTIONS (7)
  - Dysphagia [Unknown]
  - Speech disorder [Unknown]
  - Eating disorder [Unknown]
  - Nausea [Unknown]
  - Oral mucosal erythema [Unknown]
  - Stomatitis [Unknown]
  - White blood cell count decreased [Unknown]
